FAERS Safety Report 25671674 (Version 4)
Quarter: 2025Q4

REPORT INFORMATION
  Report Type: Spontaneous
  Country: US (occurrence: US)
  Receive Date: 20250812
  Receipt Date: 20251022
  Transmission Date: 20260117
  Serious: No
  Sender: ALNYLAM PHARMACEUTICALS
  Company Number: US-ALNYLAM PHARMACEUTICALS, INC.-ALN-2025-004872

PATIENT
  Age: 69 Year

DRUGS (1)
  1. AMVUTTRA [Suspect]
     Active Substance: VUTRISIRAN
     Indication: Acquired ATTR amyloidosis
     Dosage: 25 MILLIGRAM, Q3M

REACTIONS (7)
  - Polyneuropathy [Unknown]
  - Cardiac hypertrophy [Recovering/Resolving]
  - Cognitive disorder [Unknown]
  - Ventricular tachycardia [Unknown]
  - Trigger finger [Unknown]
  - Paraesthesia [Unknown]
  - Sensorimotor disorder [Unknown]
